FAERS Safety Report 12702450 (Version 1)
Quarter: 2016Q3

REPORT INFORMATION
  Report Type: Spontaneous
  Country: US (occurrence: US)
  Receive Date: 20160831
  Receipt Date: 20160831
  Transmission Date: 20161109
  Serious: No
  Sender: FDA-Public Use
  Company Number: US-JNJFOC-20160622638

PATIENT
  Sex: Female
  Weight: 49.9 kg

DRUGS (1)
  1. GENERIC TOPAMAX [Suspect]
     Active Substance: TOPIRAMATE
     Indication: MIGRAINE
     Route: 048
     Dates: start: 200708

REACTIONS (1)
  - Adverse event [Unknown]
